FAERS Safety Report 6041916-2 (Version None)
Quarter: 2009Q1

REPORT INFORMATION
  Report Type: 
  Country: None (occurrence: None)
  Receive Date: 20090116
  Receipt Date: 20080430
  Transmission Date: 20090719
  Serious: No
  Sender: FDA-Public Use
  Company Number: US-BAYER-200812090BCC

PATIENT
  Age: 88 Year
  Sex: Female
  Weight: 64 kg

DRUGS (7)
  1. ALEVE ARTHRITIS CAPLETS SMOOTH GELS [Suspect]
     Indication: PAIN
     Dosage: AS USED: 440-220 MG  UNIT DOSE: 220 MG
     Route: 048
     Dates: start: 20080428
  2. ALEVE ARTHRITIS CAPLETS SMOOTH GELS [Suspect]
     Dosage: AS USED: 220 MG  UNIT DOSE: 220 MG
     Route: 048
     Dates: start: 20080429
  3. ALEVE ARTHRITIS CAPLETS SMOOTH GELS [Suspect]
     Dosage: AS USED: 220 MG  UNIT DOSE: 220 MG
     Route: 048
     Dates: start: 20080430
  4. SYNTHROID [Concomitant]
     Indication: DRUG USE FOR UNKNOWN INDICATION
  5. MOBIC [Concomitant]
     Indication: DRUG USE FOR UNKNOWN INDICATION
  6. TEMAZEPAM [Concomitant]
     Indication: DRUG USE FOR UNKNOWN INDICATION
  7. CLONAZEPAM [Concomitant]
     Indication: DRUG USE FOR UNKNOWN INDICATION

REACTIONS (1)
  - ANXIETY [None]
